FAERS Safety Report 9879408 (Version 2)
Quarter: 2015Q2

REPORT INFORMATION
  Report Type: Spontaneous
  Country: IT (occurrence: IT)
  Receive Date: 20140206
  Receipt Date: 20150422
  Transmission Date: 20150821
  Serious: Yes (Death)
  Sender: FDA-Public Use
  Company Number: PHHY2014IT007676

PATIENT
  Age: 49 Year
  Sex: Male

DRUGS (6)
  1. THEOPHYLLINE [Suspect]
     Active Substance: THEOPHYLLINE ANHYDROUS
     Indication: PROPHYLAXIS
     Dosage: 375 MG, QD
     Route: 065
  2. METOCLOPRAMIDE. [Suspect]
     Active Substance: METOCLOPRAMIDE
     Indication: NAUSEA
     Route: 065
  3. PARACETAMOL 1A PHARMA [Suspect]
     Active Substance: ACETAMINOPHEN
     Indication: ABDOMINAL PAIN
     Dosage: 500 MG, TID
     Route: 048
  4. PARACETAMOL 1A PHARMA [Suspect]
     Active Substance: ACETAMINOPHEN
     Indication: PYREXIA
  5. METOCLOPRAMIDE. [Suspect]
     Active Substance: METOCLOPRAMIDE
     Indication: VOMITING
  6. VERAPAMIL [Suspect]
     Active Substance: VERAPAMIL HYDROCHLORIDE
     Indication: PROPHYLAXIS
     Dosage: 40 MG, BID, UP TO 240 MG
     Route: 065

REACTIONS (9)
  - Hypotension [Unknown]
  - Tachycardia [Unknown]
  - Tremor [Unknown]
  - Drug intolerance [Unknown]
  - Hypovolaemic shock [Fatal]
  - Drug ineffective [Unknown]
  - Cardiac arrest [Fatal]
  - Palpitations [Unknown]
  - Multi-organ failure [Fatal]
